FAERS Safety Report 16494702 (Version 8)
Quarter: 2021Q1

REPORT INFORMATION
  Report Type: Report from Study
  Country: DE (occurrence: DE)
  Receive Date: 20190628
  Receipt Date: 20210310
  Transmission Date: 20210419
  Serious: Yes (Death, Hospitalization)
  Sender: FDA-Public Use
  Company Number: DE-EISAI MEDICAL RESEARCH-EC-2019-055892

PATIENT
  Age: 64 Year
  Sex: Male
  Weight: 60 kg

DRUGS (26)
  1. LENVATINIB [Suspect]
     Active Substance: LENVATINIB
     Route: 048
     Dates: start: 20190723, end: 20191003
  2. OXYCODONE [Concomitant]
     Active Substance: OXYCODONE
  3. PREGABALIN. [Concomitant]
     Active Substance: PREGABALIN
  4. MAGNESIUM VERLA [Concomitant]
     Active Substance: MAGNESIUM
  5. AMITRIPTYLIN [Concomitant]
     Active Substance: AMITRIPTYLINE
  6. PANTOPRAZOL [Concomitant]
     Active Substance: PANTOPRAZOLE SODIUM
  7. ALLOPURINOL. [Concomitant]
     Active Substance: ALLOPURINOL
  8. SPIRONOLACTON [Concomitant]
     Active Substance: SPIRONOLACTONE
  9. LENVATINIB [Suspect]
     Active Substance: LENVATINIB
     Route: 048
     Dates: start: 20190526, end: 20190619
  10. PARACETAMOL [Concomitant]
     Active Substance: ACETAMINOPHEN
  11. ROXI ARISTO [Concomitant]
  12. FRESUBIN [Concomitant]
     Active Substance: AMINO ACIDS\DEXTROSE\ELECTROLYTES NOS\SOYBEAN OIL\VITAMINS
  13. ZOMETA [Concomitant]
     Active Substance: ZOLEDRONIC ACID
  14. L?THYROX [Concomitant]
     Active Substance: LEVOTHYROXINE SODIUM
  15. AZITHROMYCIN ANHYDROUS. [Concomitant]
     Active Substance: AZITHROMYCIN ANHYDROUS
  16. LENVATINIB [Suspect]
     Active Substance: LENVATINIB
     Indication: THYROID CANCER
     Route: 048
     Dates: start: 20181018, end: 20190429
  17. LENVATINIB [Suspect]
     Active Substance: LENVATINIB
     Route: 048
     Dates: start: 20190722, end: 20190722
  18. DEKRISTOL [Concomitant]
     Active Substance: CHOLECALCIFEROL
  19. SULTAMICILLIN [Concomitant]
     Active Substance: SULTAMICILLIN
  20. FUROSEMID [Concomitant]
     Active Substance: FUROSEMIDE
  21. CALCIUM [Concomitant]
     Active Substance: CALCIUM
  22. CALCITRIOL. [Concomitant]
     Active Substance: CALCITRIOL
  23. SALBUBRONCH ELEXIER [Concomitant]
  24. BISOPROLOL [Concomitant]
     Active Substance: BISOPROLOL
  25. LOPERAMIDE [Concomitant]
     Active Substance: LOPERAMIDE
  26. ACC [Concomitant]
     Active Substance: ACETYLCYSTEINE

REACTIONS (3)
  - Pleural effusion [Recovered/Resolved]
  - Pneumonia [Fatal]
  - Haematuria [Recovered/Resolved]

NARRATIVE: CASE EVENT DATE: 20190430
